FAERS Safety Report 15698686 (Version 1)
Quarter: 2018Q4

REPORT INFORMATION
  Report Type: Spontaneous
  Country: FR (occurrence: FR)
  Receive Date: 20181207
  Receipt Date: 20181207
  Transmission Date: 20190205
  Serious: Yes (Hospitalization, Other)
  Sender: FDA-Public Use
  Company Number: FR-ACCORD-095362

PATIENT
  Age: 89 Year
  Sex: Male
  Weight: 78.3 kg

DRUGS (19)
  1. BISOPROLOL/BISOPROLOL FUMARATE/BISOPROLOL HEMIFUMARATE [Concomitant]
  2. FUROSEMIDE. [Concomitant]
     Active Substance: FUROSEMIDE
  3. IPRATROPIUM/IPRATROPIUM BROMIDE [Concomitant]
  4. LISINOPRIL. [Concomitant]
     Active Substance: LISINOPRIL
  5. MACROGOL/MACROGOL STEARATE [Concomitant]
  6. NICORANDIL [Concomitant]
     Active Substance: NICORANDIL
  7. PREVISCAN [Concomitant]
  8. ROXITHROMYCIN [Interacting]
     Active Substance: ROXITHROMYCIN
     Indication: BRONCHITIS
     Route: 048
     Dates: start: 20171228, end: 20171230
  9. KARDEGIC [Concomitant]
     Active Substance: ASPIRIN DL-LYSINE
  10. SPIRIVA [Concomitant]
     Active Substance: TIOTROPIUM BROMIDE MONOHYDRATE
  11. LANSOPRAZOLE. [Concomitant]
     Active Substance: LANSOPRAZOLE
  12. SALBUTAMOL [Concomitant]
     Active Substance: ALBUTEROL
  13. PRAVASTATINE ACCORD [Suspect]
     Active Substance: PRAVASTATIN SODIUM
     Indication: HYPERCHOLESTEROLAEMIA
     Route: 048
     Dates: end: 20171231
  14. CETIRIZINE/CETIRIZINE HYDROCHLORIDE [Concomitant]
  15. TRINITRINE [Concomitant]
     Active Substance: NITROGLYCERIN
  16. AMLOR [Concomitant]
     Active Substance: AMLODIPINE BESYLATE
  17. NOVONORM [Concomitant]
     Active Substance: REPAGLINIDE
  18. XELEVIA [Concomitant]
     Active Substance: SITAGLIPTIN PHOSPHATE
  19. LEVEMIR [Concomitant]
     Active Substance: INSULIN DETEMIR

REACTIONS (3)
  - Myalgia [Recovered/Resolved]
  - Drug interaction [Unknown]
  - Muscular weakness [Recovered/Resolved]

NARRATIVE: CASE EVENT DATE: 20171229
